FAERS Safety Report 7480806-5 (Version None)
Quarter: 2011Q2

REPORT INFORMATION
  Report Type: 
  Country: None (occurrence: None)
  Receive Date: 20110516
  Receipt Date: 20110404
  Transmission Date: 20111010
  Serious: Yes (Other)
  Sender: FDA-Public Use
  Company Number: US-BAYER-201039629NA

PATIENT
  Age: 32 Year
  Sex: Female
  Weight: 79 kg

DRUGS (6)
  1. YAZ [Suspect]
     Indication: CONTRACEPTION
     Dosage: QD
     Route: 048
     Dates: start: 20081201, end: 20090501
  2. FLUOCINONIDE [Concomitant]
     Dosage: MASSAGE ONTO AFFECTED AREAS TWICE DAILY PRN
     Route: 061
     Dates: start: 20090123
  3. HYDROXYZINE PAMOATE [Concomitant]
     Indication: PAIN
     Dosage: 25 MG CAPSULES TAKE ONE TO TWO EVERY SIX HOURS PRN
     Dates: start: 20081207
  4. PREVACID [Concomitant]
     Indication: BILIARY COLIC
     Dosage: 30 MG, QD
     Route: 048
  5. IBUPROFEN [Concomitant]
     Indication: PAIN
     Dosage: 100MG/5ML SYRUP 600MG (EQUALS 30 ML) THREE TIME DAILY PRN
     Dates: start: 20081207
  6. IRON [IRON] [Concomitant]
     Indication: ANAEMIA
     Dosage: 45 MG, QD
     Route: 048

REACTIONS (2)
  - GALLBLADDER DISORDER [None]
  - CHOLECYSTITIS CHRONIC [None]
